FAERS Safety Report 4537804-0 (Version None)
Quarter: 2004Q4

REPORT INFORMATION
  Report Type: 
  Country: None (occurrence: None)
  Receive Date: 20041224
  Receipt Date: 20041022
  Transmission Date: 20050328
  Serious: Yes (Life-Threatening, Hospitalization)
  Sender: FDA-Public Use
  Company Number: US-MERCK-0410USA03482

PATIENT
  Age: 52 Year
  Sex: Female

DRUGS (10)
  1. VIOXX [Suspect]
     Indication: ARTHRITIS
     Route: 048
     Dates: end: 20041019
  2. ASPIRIN [Concomitant]
     Route: 065
  3. POTASSIUM (UNSPECIFIED) [Concomitant]
     Route: 065
  4. LEXAPRO [Concomitant]
     Route: 065
  5. PREVACID [Concomitant]
     Route: 065
  6. PRAVACHOL [Concomitant]
     Route: 065
  7. PRINZIDE [Concomitant]
     Route: 048
  8. DILTIAZEM HYDROCHLORIDE [Concomitant]
     Route: 065
  9. LASIX [Concomitant]
     Route: 065
  10. LANTUS [Concomitant]
     Route: 065

REACTIONS (4)
  - BLOOD CREATININE INCREASED [None]
  - CARDIAC STRESS TEST ABNORMAL [None]
  - PROTEINURIA [None]
  - RENAL DISORDER [None]
